FAERS Safety Report 20127917 (Version 1)
Quarter: 2021Q4

REPORT INFORMATION
  Report Type: Spontaneous
  Country: US (occurrence: None)
  Receive Date: 20211129
  Receipt Date: 20211129
  Transmission Date: 20220303
  Serious: No
  Sender: FDA-Public Use
  Company Number: US-ROCHE-2721221

PATIENT
  Sex: Female
  Weight: 52.210 kg

DRUGS (4)
  1. HERCEPTIN [Suspect]
     Active Substance: TRASTUZUMAB
     Indication: HER2 positive breast cancer
     Route: 065
  2. IBRANCE [Suspect]
     Active Substance: PALBOCICLIB
     Indication: HER2 positive breast cancer
     Dosage: 1 DAILY FOR 21 DAYS, ONGOING: HOLD FOR 3 WEEKS AFTER LAST CYCLE
     Route: 048
     Dates: start: 20200817
  3. IBRANCE [Suspect]
     Active Substance: PALBOCICLIB
     Dosage: 3 DAYS ON, 1 OFF
     Route: 048
  4. PERJETA [Suspect]
     Active Substance: PERTUZUMAB
     Indication: HER2 positive breast cancer
     Route: 065

REACTIONS (4)
  - Full blood count abnormal [Unknown]
  - Fatigue [Unknown]
  - Taste disorder [Unknown]
  - Stomatitis [Unknown]
